FAERS Safety Report 16276637 (Version 2)
Quarter: 2019Q2

REPORT INFORMATION
  Report Type: Spontaneous
  Country: US (occurrence: US)
  Receive Date: 20190506
  Receipt Date: 20190509
  Transmission Date: 20190711
  Serious: No
  Sender: FDA-Public Use
  Company Number: US-PFIZER INC-2019184416

PATIENT

DRUGS (5)
  1. PREMARIN [Suspect]
     Active Substance: ESTROGENS, CONJUGATED
     Indication: BONE DISORDER
     Dosage: 0.3 MG, DAILY
  2. NITROGLYCERIN. [Concomitant]
     Active Substance: NITROGLYCERIN
     Indication: CARDIAC DISORDER
     Dosage: 0.4 MG, AS NEEDED (AFTER BREAKFAST, MORNING DAILY AND EVENING DAILY)
  3. TIKOSYN [Concomitant]
     Active Substance: DOFETILIDE
     Indication: HEART RATE
     Dosage: UNK, 2X/DAY (AFTER BREAKFAST, MORNING DAILY AND EVENING DAILY)
     Dates: start: 20170311
  4. PREMARIN [Suspect]
     Active Substance: ESTROGENS, CONJUGATED
     Indication: CYSTITIS
     Dosage: UNK (0.450- 4X/WEEK)
  5. PREMARIN [Suspect]
     Active Substance: ESTROGENS, CONJUGATED
     Dosage: 0.6 MG, DAILY (AFTER BREAKFAST, MORNING DAILY AND EVENING DAILY)

REACTIONS (1)
  - Drug effective for unapproved indication [Unknown]
